FAERS Safety Report 25864042 (Version 1)
Quarter: 2025Q3

REPORT INFORMATION
  Report Type: Spontaneous
  Country: US (occurrence: US)
  Receive Date: 20250930
  Receipt Date: 20250930
  Transmission Date: 20251021
  Serious: No
  Sender: ROCHE
  Company Number: US-ROCHE-10000392514

PATIENT
  Sex: Female

DRUGS (3)
  1. XOLAIR PFS [Suspect]
     Active Substance: OMALIZUMAB
     Indication: Urticaria
     Dosage: STRENGTH: 300 MG/2ML
     Route: 058
     Dates: start: 202408
  2. XOLAIR PFS [Suspect]
     Active Substance: OMALIZUMAB
     Indication: Rheumatoid arthritis
  3. ENBREL [Concomitant]
     Active Substance: ETANERCEPT

REACTIONS (2)
  - Rheumatoid arthritis [Unknown]
  - Off label use [Unknown]
